APPROVED DRUG PRODUCT: SSD
Active Ingredient: SILVER SULFADIAZINE
Strength: 1%
Dosage Form/Route: CREAM;TOPICAL
Application: N018578 | Product #001 | TE Code: AB
Applicant: DR REDDYS LABORATORIES INC
Approved: Feb 25, 1982 | RLD: Yes | RS: Yes | Type: RX